FAERS Safety Report 10527754 (Version 1)
Quarter: 2014Q4

REPORT INFORMATION
  Report Type: Spontaneous
  Country: US (occurrence: None)
  Receive Date: 20141016
  Receipt Date: 20141016
  Transmission Date: 20150528
  Serious: No
  Sender: FDA-Public Use
  Company Number: None

PATIENT
  Age: 56 Year
  Sex: Female
  Weight: 72.58 kg

DRUGS (1)
  1. IBANDRONATE SODIUM 150 MG MYLAN [Suspect]
     Active Substance: IBANDRONATE SODIUM
     Indication: OSTEOPOROSIS
     Dosage: 1 PILL TAKEN BY MOUTH
     Dates: start: 20141003

REACTIONS (11)
  - Back pain [None]
  - Arthralgia [None]
  - Bone pain [None]
  - Pain in extremity [None]
  - Impaired work ability [None]
  - Musculoskeletal pain [None]
  - Dysphagia [None]
  - Chest pain [None]
  - Movement disorder [None]
  - Myalgia [None]
  - Oropharyngeal pain [None]

NARRATIVE: CASE EVENT DATE: 20141011
